FAERS Safety Report 6603105-X (Version None)
Quarter: 2010Q1

REPORT INFORMATION
  Report Type: 
  Country: None (occurrence: None)
  Receive Date: 20100226
  Receipt Date: 20100211
  Transmission Date: 20100710
  Serious: Yes (Hospitalization, Other)
  Sender: FDA-Public Use
  Company Number: PHHY2010BR10991

PATIENT

DRUGS (6)
  1. EXELON [Suspect]
     Indication: DEMENTIA ALZHEIMER'S TYPE
     Dosage: 2 CAPSULES PER DAY
  2. EXELON [Suspect]
     Dosage: 2 DF/DAY
  3. ERANZ [Suspect]
     Dosage: 10 MG DAILY
  4. TEGRETOL - SLOW RELEASE [Concomitant]
     Indication: TRIGEMINAL NEURALGIA
     Dosage: 800 MG/DAY
     Route: 048
     Dates: start: 19800101
  5. PROPRANOLOL [Concomitant]
     Indication: HYPERTENSION
     Dosage: 40 MG/DAY
     Route: 048
  6. SERTRALINE HCL [Concomitant]
     Indication: DEPRESSION
     Dosage: 50 MG/DAY
     Route: 048
     Dates: start: 20050101

REACTIONS (6)
  - APHASIA [None]
  - APRAXIA [None]
  - CEREBRAL HAEMORRHAGE [None]
  - HYPERTENSIVE CRISIS [None]
  - MEMORY IMPAIRMENT [None]
  - VASCULAR RUPTURE [None]
